FAERS Safety Report 24819859 (Version 1)
Quarter: 2025Q1

REPORT INFORMATION
  Report Type: Spontaneous
  Country: FR (occurrence: FR)
  Receive Date: 20250108
  Receipt Date: 20250108
  Transmission Date: 20250409
  Serious: Yes (Death, Hospitalization, Other)
  Sender: BRISTOL-MYERS SQUIBB COMPANY
  Company Number: FR-BRISTOL-MYERS SQUIBB COMPANY-2025-002435

PATIENT
  Age: 74 Year
  Sex: Male

DRUGS (6)
  1. FEDRATINIB [Suspect]
     Active Substance: FEDRATINIB
     Indication: Myelofibrosis
     Dates: start: 20240830, end: 20240830
  2. FEDRATINIB [Suspect]
     Active Substance: FEDRATINIB
     Dates: start: 20240831
  3. FEDRATINIB [Suspect]
     Active Substance: FEDRATINIB
     Dates: start: 20240901
  4. FEDRATINIB [Suspect]
     Active Substance: FEDRATINIB
     Dates: end: 20240903
  5. KARDEGIC [Concomitant]
     Active Substance: ASPIRIN DL-LYSINE
     Indication: Thrombosis prophylaxis
     Dates: start: 20240830
  6. ARANESP [Concomitant]
     Active Substance: DARBEPOETIN ALFA
     Indication: Anaemia
     Dates: start: 20240311, end: 20240827

REACTIONS (5)
  - Hyperkalaemia [Fatal]
  - Dyspnoea [Unknown]
  - Rebound effect [Not Recovered/Not Resolved]
  - Cardiac failure [Unknown]
  - Renal failure [Unknown]

NARRATIVE: CASE EVENT DATE: 20240914
